FAERS Safety Report 12695397 (Version 2)
Quarter: 2016Q3

REPORT INFORMATION
  Report Type: Spontaneous
  Country: NZ (occurrence: NZ)
  Receive Date: 20160829
  Receipt Date: 20160908
  Transmission Date: 20161109
  Serious: Yes (Other)
  Sender: FDA-Public Use
  Company Number: NZ-BAYER-2016-164472

PATIENT
  Sex: Female

DRUGS (1)
  1. MIRENA [Suspect]
     Active Substance: LEVONORGESTREL
     Dosage: 20 MCG/24HR, CONT
     Route: 015

REACTIONS (7)
  - Device dislocation [None]
  - Episcleritis [None]
  - Rheumatoid arthritis [None]
  - Erythema nodosum [None]
  - Alopecia [None]
  - Complication of device removal [None]
  - Inflammatory bowel disease [None]
